FAERS Safety Report 20544189 (Version 3)
Quarter: 2023Q2

REPORT INFORMATION
  Report Type: Spontaneous
  Country: US (occurrence: US)
  Receive Date: 20220303
  Receipt Date: 20230428
  Transmission Date: 20230721
  Serious: Yes (Other)
  Sender: FDA-Public Use
  Company Number: US-ROCHE-2525572

PATIENT
  Age: 38 Year
  Sex: Female
  Weight: 56.75 kg

DRUGS (12)
  1. CLONAZEPAM [Suspect]
     Active Substance: CLONAZEPAM
     Indication: Anxiety
     Dosage: AS NEEDED
  2. OCREVUS [Suspect]
     Active Substance: OCRELIZUMAB
     Indication: Relapsing-remitting multiple sclerosis
     Dosage: DATE OF TREATMENT:
     Route: 042
     Dates: start: 20190917, end: 20191003
  3. OCREVUS [Suspect]
     Active Substance: OCRELIZUMAB
     Indication: Relapsing-remitting multiple sclerosis
     Dosage: DATE OF TREATMENT: 14/OCT/2020, 14/APR/2021
     Route: 042
     Dates: start: 20200414
  4. OCREVUS [Suspect]
     Active Substance: OCRELIZUMAB
     Indication: Relapsing-remitting multiple sclerosis
     Route: 042
     Dates: start: 20220406
  5. CYMBALTA [Concomitant]
     Active Substance: DULOXETINE HYDROCHLORIDE
     Indication: Anxiety
     Route: 048
  6. CYMBALTA [Concomitant]
     Active Substance: DULOXETINE HYDROCHLORIDE
     Indication: Depression
     Route: 048
  7. OMEGA 3 [Concomitant]
     Active Substance: CAPSAICIN
     Dosage: DHA 250MG EPA 125MG
     Route: 048
  8. MAGNESIUM [Concomitant]
     Active Substance: MAGNESIUM
     Route: 048
  9. VITAMIN D3 [Concomitant]
     Active Substance: CHOLECALCIFEROL
     Route: 048
  10. BIOTIN [Concomitant]
     Active Substance: BIOTIN
     Route: 048
  11. VALERIAN [Concomitant]
     Active Substance: VALERIAN
     Route: 048
  12. MODAFINIL [Concomitant]
     Active Substance: MODAFINIL

REACTIONS (6)
  - Relapsing-remitting multiple sclerosis [Not Recovered/Not Resolved]
  - Nausea [Not Recovered/Not Resolved]
  - Pain in extremity [Unknown]
  - Constipation [Not Recovered/Not Resolved]
  - Lymphocyte count decreased [Unknown]
  - Lipase increased [Unknown]

NARRATIVE: CASE EVENT DATE: 20190917
